FAERS Safety Report 9785208 (Version 2)
Quarter: 2014Q1

REPORT INFORMATION
  Report Type: Spontaneous
  Country: IT (occurrence: IT)
  Receive Date: 20131227
  Receipt Date: 20140107
  Transmission Date: 20141002
  Serious: Yes (Other)
  Sender: FDA-Public Use
  Company Number: IT-RANBAXY-2013RR-76440

PATIENT
  Age: 76 Year
  Sex: Male

DRUGS (2)
  1. LEVOFLOXACIN [Suspect]
     Indication: OSTEOMYELITIS
     Dosage: UNK
     Route: 065
  2. METFORMIN [Suspect]
     Indication: TYPE 2 DIABETES MELLITUS
     Dosage: UNK
     Route: 065

REACTIONS (5)
  - Metabolic acidosis [Unknown]
  - Hyperlactacidaemia [Unknown]
  - Hypoglycaemia [Unknown]
  - Toxicity to various agents [Unknown]
  - Renal failure acute [Recovered/Resolved]
